FAERS Safety Report 21038429 (Version 1)
Quarter: 2022Q3

REPORT INFORMATION
  Report Type: Spontaneous
  Country: ES (occurrence: ES)
  Receive Date: 20220704
  Receipt Date: 20220704
  Transmission Date: 20221026
  Serious: Yes (Disabling)
  Sender: FDA-Public Use
  Company Number: None

PATIENT
  Age: 33 Year
  Sex: Female
  Weight: 57 kg

DRUGS (2)
  1. IMRALDI [Suspect]
     Active Substance: ADALIMUMAB
     Indication: Crohn^s disease
     Dosage: 2 PRE-FILLED PENS OF 0.8 ML
     Route: 058
     Dates: start: 20211126, end: 20220520
  2. CALCIFEDIOL [Concomitant]
     Active Substance: CALCIFEDIOL
     Indication: Vitamin D deficiency
     Dosage: UNKNOWN, SOFT CAPSULES, 10 CAPSULES (PVC/PVDC-ALUMINUM BLISTER)
     Route: 065
     Dates: start: 20220321

REACTIONS (3)
  - Psoriasis [Recovering/Resolving]
  - Palmoplantar pustulosis [Recovering/Resolving]
  - Guttate psoriasis [Recovering/Resolving]

NARRATIVE: CASE EVENT DATE: 20220509
